FAERS Safety Report 6469719-5 (Version None)
Quarter: 2009Q4

REPORT INFORMATION
  Report Type: 
  Country: None (occurrence: None)
  Receive Date: 20091130
  Receipt Date: 20091116
  Transmission Date: 20100525
  Serious: Yes (Other)
  Sender: FDA-Public Use
  Company Number: 2009SP018311

PATIENT
  Age: 7 Year
  Sex: Male

DRUGS (3)
  1. DESLORATADINE [Suspect]
     Indication: RHINITIS ALLERGIC
     Dosage: 2.5 MG;ONCE;PO
     Route: 048
     Dates: start: 20090401, end: 20090401
  2. DESLORATADINE [Suspect]
     Indication: RHINITIS ALLERGIC
     Dosage: 2.5 MG;ONCE;PO
     Route: 048
     Dates: start: 20090410, end: 20090410
  3. AVAMYS [Concomitant]

REACTIONS (5)
  - DRUG HYPERSENSITIVITY [None]
  - RASH MACULAR [None]
  - RESPIRATORY DISORDER [None]
  - RHINITIS [None]
  - URTICARIA [None]
